FAERS Safety Report 7902351-2 (Version None)
Quarter: 2011Q4

REPORT INFORMATION
  Report Type: 
  Country: None (occurrence: None)
  Receive Date: 20111108
  Receipt Date: 20111031
  Transmission Date: 20120403
  Serious: Yes (Other)
  Sender: FDA-Public Use
  Company Number: AR-B.I. PHARMACEUTICALS,INC./RIDGEFIELD-2011-EU-00090GD

PATIENT
  Sex: Male

DRUGS (5)
  1. PRAMIPEXOLE DIHYDROCHLORIDE [Suspect]
     Indication: PARKINSON'S DISEASE
     Dosage: 3 MG
  2. PRAMIPEXOLE DIHYDROCHLORIDE [Suspect]
     Dosage: UP TO 8 MG/DAY
  3. AMANTADINE HCL [Suspect]
     Indication: DYSKINESIA
     Dosage: 300 MG
     Dates: start: 20080101
  4. LEVODOPA/CARBIDOPA/ENTACAPONE [Suspect]
     Indication: PARKINSON'S DISEASE
     Dates: start: 20061001
  5. PRAMIPEXOLE DIHYDROCHLORIDE [Suspect]
     Dosage: 4.5 MG
     Dates: start: 20061001

REACTIONS (9)
  - PARAPHILIA [None]
  - HALLUCINATION, VISUAL [None]
  - HYPERSEXUALITY [None]
  - PATHOLOGICAL GAMBLING [None]
  - IMPULSE-CONTROL DISORDER [None]
  - DOPAMINE DYSREGULATION SYNDROME [None]
  - DYSKINESIA [None]
  - INSOMNIA [None]
  - AGGRESSION [None]
